FAERS Safety Report 17571295 (Version 9)
Quarter: 2023Q2

REPORT INFORMATION
  Report Type: Spontaneous
  Country: US (occurrence: US)
  Receive Date: 20200323
  Receipt Date: 20230622
  Transmission Date: 20230721
  Serious: Yes (Hospitalization, Other)
  Sender: FDA-Public Use
  Company Number: US-PFIZER INC-2020122221

PATIENT
  Age: 71 Year
  Sex: Female
  Weight: 70 kg

DRUGS (2)
  1. INLYTA [Suspect]
     Active Substance: AXITINIB
     Indication: Metastases to kidney
     Dosage: 5 MG, DAILY
     Dates: start: 202002
  2. KEYTRUDA [Concomitant]
     Active Substance: PEMBROLIZUMAB
     Dosage: UNK
     Dates: start: 202002

REACTIONS (16)
  - Pneumonia [Not Recovered/Not Resolved]
  - Weight decreased [Recovering/Resolving]
  - Hypertension [Recovering/Resolving]
  - Product dose omission issue [Unknown]
  - Diarrhoea [Recovered/Resolved]
  - Skin lesion [Recovering/Resolving]
  - Hyperkeratosis [Recovering/Resolving]
  - Sensitive skin [Recovering/Resolving]
  - Gait disturbance [Unknown]
  - Erythema [Unknown]
  - Pain in extremity [Unknown]
  - Tongue discomfort [Not Recovered/Not Resolved]
  - Thyroid disorder [Unknown]
  - Fatigue [Unknown]
  - Asthenia [Unknown]
  - Pain [Unknown]

NARRATIVE: CASE EVENT DATE: 20200101
